FAERS Safety Report 9379701 (Version 2)
Quarter: 2013Q3

REPORT INFORMATION
  Report Type: Spontaneous
  Country: NL (occurrence: NL)
  Receive Date: 20130702
  Receipt Date: 20130712
  Transmission Date: 20140515
  Serious: Yes (Other)
  Sender: FDA-Public Use
  Company Number: NL-NAPPMUNDI-GBR-2013-0014073

PATIENT
  Age: 71 Year
  Sex: Male
  Weight: 72 kg

DRUGS (4)
  1. OXYCONTIN 10 MG [Suspect]
     Indication: PROCEDURAL PAIN
     Dosage: 5 MG, DAILY (HALF A TABLET PER DAY)
     Route: 048
     Dates: start: 20130514
  2. OXYCONTIN 10 MG [Suspect]
     Dosage: 10 MG, TID
     Route: 048
     Dates: start: 20130318, end: 20130514
  3. MOVICOLON [Concomitant]
  4. TEMAZEPAM [Concomitant]

REACTIONS (6)
  - Drug withdrawal syndrome [Recovered/Resolved]
  - Hyperventilation [Recovered/Resolved]
  - Palpitations [Recovered/Resolved]
  - Discomfort [Recovered/Resolved]
  - Anxiety [Recovered/Resolved]
  - Wrong technique in drug usage process [Unknown]
